FAERS Safety Report 7517853-0 (Version None)
Quarter: 2011Q2

REPORT INFORMATION
  Report Type: 
  Country: None (occurrence: None)
  Receive Date: 20110602
  Receipt Date: 20110527
  Transmission Date: 20111010
  Serious: Yes (Hospitalization)
  Sender: FDA-Public Use
  Company Number: DE-BRISTOL-MYERS SQUIBB COMPANY-15777394

PATIENT
  Age: 48 Year
  Sex: Male

DRUGS (3)
  1. CISPLATIN [Suspect]
     Indication: OESOPHAGEAL CARCINOMA
     Dosage: 01-APR-2011(20D)133 MG, RECEIVED 44 MG FROM 27-APR-2011-ONGOING
     Route: 042
     Dates: start: 20110311
  2. CETUXIMAB [Suspect]
     Indication: OESOPHAGEAL CARCINOMA
     Dosage: 18-MAR-2011: 400 MG ONCE- ONGOING
     Route: 042
     Dates: start: 20110311
  3. DOCETAXEL [Suspect]
     Indication: OESOPHAGEAL CARCINOMA
     Dosage: 11-MAR-2011 TO 01-APR-2011: 35 MG FROM 27-APR-2011-ONGOING.
     Route: 042
     Dates: start: 20110311

REACTIONS (2)
  - WEIGHT DECREASED [None]
  - RADIATION OESOPHAGITIS [None]
